FAERS Safety Report 24970258 (Version 1)
Quarter: 2025Q1

REPORT INFORMATION
  Report Type: Spontaneous
  Country: US (occurrence: None)
  Receive Date: 20250214
  Receipt Date: 20250214
  Transmission Date: 20250409
  Serious: Yes (Hospitalization)
  Sender: FDA-CTU
  Company Number: None

PATIENT
  Sex: Male

DRUGS (9)
  1. LENALIDOMIDE [Suspect]
     Active Substance: LENALIDOMIDE
     Indication: Plasma cell myeloma
     Dosage: FREQUENCY : DAILY;?
     Route: 048
     Dates: start: 20231026
  2. ASPIRIN LOW TAB 81 MG EC [Concomitant]
  3. HYDROCHLOROT CAP 12.5MG [Concomitant]
  4. METOPROL TAR TAB 50MG [Concomitant]
  5. NIACIN TAB 250MG [Concomitant]
  6. POTASSIUM CAP 99MG [Concomitant]
  7. TOPROL XL [Concomitant]
     Active Substance: METOPROLOL SUCCINATE
  8. VELCADE INJ 3.SMG [Concomitant]
  9. VITAMIN c TAB 5OOMG [Concomitant]

REACTIONS (5)
  - Pneumonia [None]
  - Renal injury [None]
  - COVID-19 [None]
  - Product dose omission in error [None]
  - Inappropriate schedule of product administration [None]
